FAERS Safety Report 5119732-5 (Version None)
Quarter: 2006Q4

REPORT INFORMATION
  Report Type: 
  Country: None (occurrence: None)
  Receive Date: 20061003
  Receipt Date: 20060828
  Transmission Date: 20070319
  Serious: Yes (Disabling, Other)
  Sender: FDA-Public Use
  Company Number: US-PURDUE-USA_2006_0025065

PATIENT
  Age: 71 Year
  Sex: Male

DRUGS (2)
  1. MORPHINE SULFATE [Suspect]
     Indication: CANCER PAIN
     Dosage: 10 MG, Q4H
     Route: 048
     Dates: end: 20060828
  2. ANTINEOPLASTIC AGENTS [Concomitant]
     Indication: METASTATIC NEOPLASM

REACTIONS (5)
  - DYSARTHRIA [None]
  - DYSPHASIA [None]
  - DYSSTASIA [None]
  - GAIT DISTURBANCE [None]
  - OEDEMA PERIPHERAL [None]
